FAERS Safety Report 20237557 (Version 1)
Quarter: 2021Q4

REPORT INFORMATION
  Report Type: Spontaneous
  Country: FR (occurrence: FR)
  Receive Date: 20211228
  Receipt Date: 20211228
  Transmission Date: 20220303
  Serious: Yes (Hospitalization)
  Sender: FDA-Public Use
  Company Number: None

PATIENT
  Age: 69 Year
  Sex: Male
  Weight: 81 kg

DRUGS (27)
  1. NEFOPAM [Suspect]
     Active Substance: NEFOPAM
     Indication: Pain
     Dosage: UNK
     Route: 042
     Dates: start: 20210519, end: 20210521
  2. URAPIDIL [Suspect]
     Active Substance: URAPIDIL
     Indication: Hypertension
     Dosage: UNK
     Route: 048
     Dates: start: 20210601, end: 20210604
  3. AMIKACIN [Suspect]
     Active Substance: AMIKACIN
     Indication: Infection
     Dosage: UNK
     Route: 042
     Dates: start: 20210601, end: 20210603
  4. RACECADOTRIL [Suspect]
     Active Substance: RACECADOTRIL
     Indication: Diarrhoea
     Dosage: UNK
     Route: 048
     Dates: start: 20210528, end: 20210530
  5. HYDROXYZINE [Suspect]
     Active Substance: HYDROXYZINE HYDROCHLORIDE
     Indication: Product used for unknown indication
     Dosage: UNK
     Route: 048
     Dates: start: 20210602, end: 20210604
  6. CEFOTAXIME [Suspect]
     Active Substance: CEFOTAXIME SODIUM
     Indication: Infection
     Dosage: UNK
     Route: 042
     Dates: start: 20210529, end: 20210608
  7. TRANEXAMIC ACID [Suspect]
     Active Substance: TRANEXAMIC ACID
     Indication: Agitation
     Dosage: UNK
     Dates: start: 20210519, end: 20210520
  8. HYDROCORTISONE [Suspect]
     Active Substance: HYDROCORTISONE
     Indication: Product used for unknown indication
     Dosage: UNK
     Dates: start: 20210519, end: 20210530
  9. PIPERACILLIN AND TAZOBACTAM [Suspect]
     Active Substance: PIPERACILLIN SODIUM\TAZOBACTAM SODIUM
     Indication: Infection
     Dosage: UNK
     Route: 042
     Dates: start: 20210519, end: 20210529
  10. CILASTATIN SODIUM\IMIPENEM [Suspect]
     Active Substance: CILASTATIN SODIUM\IMIPENEM
     Indication: Antibiotic therapy
     Dosage: 1 DOSAGE FORM, QD
     Route: 042
     Dates: start: 20210529, end: 20210608
  11. TRAMADOL [Suspect]
     Active Substance: TRAMADOL
     Indication: Pain
     Dosage: 50 MILLIGRAM, Q3D
     Route: 042
     Dates: start: 20210519, end: 20210606
  12. LOVENOX [Suspect]
     Active Substance: ENOXAPARIN SODIUM
     Indication: Prophylaxis
     Dosage: UNK
     Dates: start: 20210519, end: 20210531
  13. IOMERON [Suspect]
     Active Substance: IOMEPROL
     Indication: Imaging procedure
     Dosage: LE 07/06 ET 28/06/2021
     Route: 042
  14. FLUCONAZOLE [Suspect]
     Active Substance: FLUCONAZOLE
     Indication: Systemic candida
     Dosage: 800 MILLIGRAM, QD
     Route: 042
     Dates: start: 20210601, end: 20210606
  15. HEPARIN SODIUM [Suspect]
     Active Substance: HEPARIN SODIUM
     Indication: Prophylaxis
     Dosage: UNK
     Dates: start: 20210530, end: 20210602
  16. NOREPINEPHRINE [Suspect]
     Active Substance: NOREPINEPHRINE
     Indication: Hypertension
     Dosage: UNK
     Route: 042
     Dates: start: 20210519, end: 20210530
  17. METRONIDAZOLE [Suspect]
     Active Substance: METRONIDAZOLE
     Indication: Infection
     Dosage: UNK
     Route: 048
     Dates: start: 20210601, end: 20210603
  18. SPIRONOLACTONE [Suspect]
     Active Substance: SPIRONOLACTONE
     Indication: Ascites
     Dosage: 1 DOSAGE FORM, QD
     Route: 048
     Dates: start: 20210601, end: 20210610
  19. LOXAPINE [Suspect]
     Active Substance: LOXAPINE
     Indication: Agitation
     Dosage: UNK
     Dates: start: 20210522, end: 20210524
  20. DIAZEPAM [Suspect]
     Active Substance: DIAZEPAM
     Indication: Agitation
     Dosage: UNK
     Dates: start: 20210522, end: 20210602
  21. FUROSEMIDE [Suspect]
     Active Substance: FUROSEMIDE
     Indication: Ascites
     Dosage: 10 MILLIGRAM, QD, 20 MG/2 ML, SOLUTION INJECTABLE (IM-IV)
     Route: 042
     Dates: start: 20210521, end: 20210608
  22. INSULIN NOS [Concomitant]
     Active Substance: INSULIN NOS
     Dosage: UNK
  23. RASAGILINE [Concomitant]
     Active Substance: RASAGILINE
     Dosage: UNK
  24. PANTOPRAZOLE [Concomitant]
     Active Substance: PANTOPRAZOLE
     Dosage: UNK
  25. CASPOFUNGIN [Concomitant]
     Active Substance: CASPOFUNGIN
     Dosage: UNK
  26. OCTREOTIDE [Concomitant]
     Active Substance: OCTREOTIDE
     Dosage: UNK
  27. VANCOMYCIN [Concomitant]
     Active Substance: VANCOMYCIN
     Dosage: UNK

REACTIONS (1)
  - Drug reaction with eosinophilia and systemic symptoms [Recovering/Resolving]

NARRATIVE: CASE EVENT DATE: 20210613
